FAERS Safety Report 5525558-0 (Version None)
Quarter: 2007Q4

REPORT INFORMATION
  Report Type: 
  Country: None (occurrence: None)
  Receive Date: 20071126
  Receipt Date: 20071115
  Transmission Date: 20080405
  Serious: Yes (Disabling)
  Sender: FDA-Public Use
  Company Number: B0490466A

PATIENT
  Age: 63 Year
  Sex: Female

DRUGS (5)
  1. HYCAMTIN [Suspect]
     Indication: OVARIAN CANCER
     Dosage: 4MGK WEEKLY
     Route: 042
     Dates: start: 20070727, end: 20070928
  2. FLECAINIDE ACETATE [Concomitant]
     Route: 048
  3. NOOTROPYL [Concomitant]
     Route: 048
  4. ZANIDIP [Concomitant]
     Route: 048
  5. NIFUROXAZIDE [Concomitant]
     Route: 048

REACTIONS (2)
  - LYMPHADENOPATHY [None]
  - NEUROPATHY [None]
